FAERS Safety Report 10884108 (Version 2)
Quarter: 2015Q2

REPORT INFORMATION
  Report Type: Report from Study
  Country: US (occurrence: US)
  Receive Date: 20150304
  Receipt Date: 20150403
  Transmission Date: 20150821
  Serious: No
  Sender: FDA-Public Use
  Company Number: US-BIOGENIDEC-2015BI023999

PATIENT
  Age: 46 Year
  Sex: Female

DRUGS (3)
  1. TECFIDERA [Suspect]
     Active Substance: DIMETHYL FUMARATE
     Indication: MULTIPLE SCLEROSIS
     Route: 048
     Dates: start: 20141114
  2. TECFIDERA [Suspect]
     Active Substance: DIMETHYL FUMARATE
     Indication: MULTIPLE SCLEROSIS
     Route: 048
     Dates: start: 20141106, end: 20141113
  3. COPAXONE [Concomitant]
     Active Substance: GLATIRAMER ACETATE

REACTIONS (9)
  - Neck injury [Unknown]
  - Migraine [Not Recovered/Not Resolved]
  - Hypoaesthesia [Unknown]
  - Back injury [Unknown]
  - Headache [Not Recovered/Not Resolved]
  - Fall [Unknown]
  - Multiple sclerosis relapse [Not Recovered/Not Resolved]
  - Oesophageal dilation procedure [Recovered/Resolved]
  - Injection [Unknown]

NARRATIVE: CASE EVENT DATE: 201502
